FAERS Safety Report 8285003-1 (Version None)
Quarter: 2012Q2

REPORT INFORMATION
  Report Type: 
  Country: None (occurrence: None)
  Receive Date: 20120413
  Receipt Date: 20120120
  Transmission Date: 20120825
  Serious: No
  Sender: FDA-Public Use
  Company Number: US-ASTRAZENECA-2011SE01495

PATIENT
  Age: 55 Year
  Sex: Female
  Weight: 122.5 kg

DRUGS (20)
  1. NEXIUM [Suspect]
     Indication: GASTROOESOPHAGEAL REFLUX DISEASE
     Route: 048
     Dates: start: 20080101
  2. BACLOFEN [Concomitant]
  3. SYMBICORT [Concomitant]
     Route: 055
  4. CELEBREX [Concomitant]
  5. ZYRTEC [Concomitant]
  6. ATENOLOL [Concomitant]
     Route: 048
  7. LASIX [Concomitant]
  8. LYRICA [Concomitant]
  9. CALCIUM CARBONATE [Concomitant]
  10. OXYCONTIN [Concomitant]
  11. REGLAN [Suspect]
     Indication: GASTROOESOPHAGEAL REFLUX DISEASE
  12. CRESTOR [Concomitant]
     Route: 048
  13. GENERIC GAS PILL [Concomitant]
     Dosage: 4 TIMES A DAY
  14. CYMBALTA [Concomitant]
  15. ATIVAN [Concomitant]
  16. SINGULAIR [Concomitant]
  17. GENERIC GAS PILL [Concomitant]
  18. NEXIUM [Suspect]
     Indication: ULCER
     Route: 048
     Dates: start: 20080101
  19. BENTYL [Concomitant]
  20. SYNTHROID [Concomitant]

REACTIONS (7)
  - FLATULENCE [None]
  - HEADACHE [None]
  - DRUG INEFFECTIVE [None]
  - GASTROOESOPHAGEAL REFLUX DISEASE [None]
  - INAPPROPRIATE SCHEDULE OF DRUG ADMINISTRATION [None]
  - TREMOR [None]
  - ABDOMINAL DISTENSION [None]
